FAERS Safety Report 12926737 (Version 2)
Quarter: 2016Q4

REPORT INFORMATION
  Report Type: Spontaneous
  Country: PE (occurrence: PE)
  Receive Date: 20161108
  Receipt Date: 20161118
  Transmission Date: 20170207
  Serious: No
  Sender: FDA-Public Use
  Company Number: PE-BIOMARINAP-PE-2016-111670

PATIENT
  Age: 4 Year
  Sex: Female
  Weight: 17 kg

DRUGS (1)
  1. ALDURAZYME [Suspect]
     Active Substance: LARONIDASE
     Indication: MUCOPOLYSACCHARIDOSIS I
     Dosage: 0.58 MG/KG, QW
     Route: 042
     Dates: start: 20141006

REACTIONS (6)
  - Respiratory disorder [Unknown]
  - Influenza [Unknown]
  - Upper respiratory tract infection [Recovered/Resolved]
  - Malaise [Unknown]
  - Nasal congestion [Unknown]
  - Constipation [Unknown]

NARRATIVE: CASE EVENT DATE: 20161019
